FAERS Safety Report 4946157-5 (Version None)
Quarter: 2006Q1

REPORT INFORMATION
  Report Type: 
  Country: None (occurrence: None)
  Receive Date: 20060118
  Receipt Date: 20050729
  Transmission Date: 20060701
  Serious: Yes (Hospitalization)
  Sender: FDA-Public Use
  Company Number: BDI-007410

PATIENT
  Age: 63 Year
  Sex: Male

DRUGS (2)
  1. PROHANCE [Suspect]
     Indication: AMNESIA
     Dosage: 17 ML, ONCE; IV
     Route: 042
     Dates: start: 20050728, end: 20050728
  2. PROHANCE [Suspect]
     Indication: NUCLEAR MAGNETIC RESONANCE IMAGING BRAIN
     Dosage: 17 ML, ONCE; IV
     Route: 042
     Dates: start: 20050728, end: 20050728

REACTIONS (1)
  - ANAPHYLACTOID REACTION [None]
